FAERS Safety Report 19287291 (Version 1)
Quarter: 2021Q2

REPORT INFORMATION
  Report Type: Spontaneous
  Country: US (occurrence: US)
  Receive Date: 20210521
  Receipt Date: 20210521
  Transmission Date: 20210717
  Serious: No
  Sender: FDA-Public Use
  Company Number: US-RADIUS HEALTH INC.-2020US003921

PATIENT
  Age: 70 Year
  Sex: Female
  Weight: 61.22 kg

DRUGS (11)
  1. TRETINOIN. [Concomitant]
     Active Substance: TRETINOIN
     Indication: PRODUCT USED FOR UNKNOWN INDICATION
  2. CYCLOSPORINE. [Concomitant]
     Active Substance: CYCLOSPORINE
     Indication: PRODUCT USED FOR UNKNOWN INDICATION
  3. ACTEMRA [Concomitant]
     Active Substance: TOCILIZUMAB
     Indication: PRODUCT USED FOR UNKNOWN INDICATION
  4. TYMLOS [Suspect]
     Active Substance: ABALOPARATIDE
     Dosage: 40MCG QD, (4 CLICKS)
     Route: 058
     Dates: start: 20200927, end: 20201003
  5. TYMLOS [Suspect]
     Active Substance: ABALOPARATIDE
     Indication: OSTEOPOROSIS
     Dosage: 20 MCG, QD (2 CLICKS)
     Route: 058
     Dates: start: 20200914, end: 20200926
  6. TYMLOS [Suspect]
     Active Substance: ABALOPARATIDE
     Dosage: 80MCG QD, (8 CLICKS)
     Route: 058
     Dates: start: 20201025
  7. RESTASIS [Concomitant]
     Active Substance: CYCLOSPORINE
     Indication: PRODUCT USED FOR UNKNOWN INDICATION
  8. TYMLOS [Suspect]
     Active Substance: ABALOPARATIDE
     Dosage: 50MCG QD (5 CLICKS)
     Route: 058
     Dates: start: 20201004, end: 20201010
  9. TYMLOS [Suspect]
     Active Substance: ABALOPARATIDE
     Dosage: 70MCG QD, (7 CLICKS)
     Route: 058
     Dates: start: 20201018, end: 20201024
  10. TYMLOS [Suspect]
     Active Substance: ABALOPARATIDE
     Dosage: 60MCG QD, (6 CLICKS)
     Route: 058
     Dates: start: 20201011, end: 20201017
  11. ESTRACE [Concomitant]
     Active Substance: ESTRADIOL
     Indication: PRODUCT USED FOR UNKNOWN INDICATION

REACTIONS (9)
  - Hot flush [Recovering/Resolving]
  - Incorrect product administration duration [Unknown]
  - Injection site scab [Recovering/Resolving]
  - Heart rate increased [Recovering/Resolving]
  - Injection site pain [Not Recovered/Not Resolved]
  - Flushing [Recovering/Resolving]
  - Headache [Recovered/Resolved]
  - Off label use [Recovered/Resolved]
  - Injection site haemorrhage [Recovered/Resolved]

NARRATIVE: CASE EVENT DATE: 20200914
